FAERS Safety Report 16851901 (Version 1)
Quarter: 2019Q3

REPORT INFORMATION
  Report Type: Spontaneous
  Country: DE (occurrence: DE)
  Receive Date: 20190925
  Receipt Date: 20190925
  Transmission Date: 20191005
  Serious: Yes (Death, Hospitalization, Other)
  Sender: FDA-Public Use
  Company Number: DE-AMGEN-DEUSP2019155892

PATIENT
  Age: 65 Year
  Sex: Male

DRUGS (8)
  1. XGEVA [Suspect]
     Active Substance: DENOSUMAB
     Indication: HYPERCALCAEMIA OF MALIGNANCY
     Dosage: 120 MILLIGRAM
     Route: 065
     Dates: start: 20170505
  2. CISPLATIN. [Concomitant]
     Active Substance: CISPLATIN
  3. GEMCITABINE. [Concomitant]
     Active Substance: GEMCITABINE
  4. RAMIPRIL. [Concomitant]
     Active Substance: RAMIPRIL
  5. SITAGLIPTIN [Concomitant]
     Active Substance: SITAGLIPTIN
     Indication: TYPE 2 DIABETES MELLITUS
  6. SIMVASTATIN. [Concomitant]
     Active Substance: SIMVASTATIN
  7. ACETYLSALICYLIC ACID [Concomitant]
     Active Substance: ASPIRIN
  8. CAPECITABINE. [Concomitant]
     Active Substance: CAPECITABINE

REACTIONS (5)
  - Syncope [Unknown]
  - Off label use [Unknown]
  - Disease progression [Fatal]
  - Superinfection bacterial [Unknown]
  - Influenza [Unknown]

NARRATIVE: CASE EVENT DATE: 201706
